FAERS Safety Report 4397337-1 (Version None)
Quarter: 2004Q3

REPORT INFORMATION
  Report Type: 
  Country: None (occurrence: None)
  Receive Date: 20040714
  Receipt Date: 20040630
  Transmission Date: 20050211
  Serious: Yes (Hospitalization)
  Sender: FDA-Public Use
  Company Number: IT-GLAXOSMITHKLINE-B0338303A

PATIENT

DRUGS (2)
  1. LAMOTRIGINE [Suspect]
     Route: 048
  2. OLANZAPINE [Suspect]
     Route: 048

REACTIONS (2)
  - DRUG INTERACTION [None]
  - HYPERSENSITIVITY [None]
